FAERS Safety Report 22216639 (Version 20)
Quarter: 2023Q4

REPORT INFORMATION
  Report Type: Report from Study
  Country: CO (occurrence: CO)
  Receive Date: 20230417
  Receipt Date: 20231215
  Transmission Date: 20240109
  Serious: Yes (Hospitalization, Other)
  Sender: FDA-Public Use
  Company Number: CO-TAKEDA-2023TUS027371

PATIENT
  Age: 9 Year
  Sex: Male
  Weight: 25.6 kg

DRUGS (12)
  1. TEDUGLUTIDE [Suspect]
     Active Substance: TEDUGLUTIDE
     Indication: Short-bowel syndrome
     Dosage: 1.6 MILLIGRAM, QD
     Route: 058
     Dates: start: 20230225
  2. TEDUGLUTIDE [Suspect]
     Active Substance: TEDUGLUTIDE
     Indication: Short-bowel syndrome
     Dosage: 1.6 MILLIGRAM, QD
     Route: 058
     Dates: start: 20230225
  3. TEDUGLUTIDE [Suspect]
     Active Substance: TEDUGLUTIDE
     Indication: Short-bowel syndrome
     Dosage: 1.6 MILLIGRAM, QD
     Route: 058
     Dates: start: 20230225
  4. TEDUGLUTIDE [Suspect]
     Active Substance: TEDUGLUTIDE
     Indication: Short-bowel syndrome
     Dosage: 1.6 MILLIGRAM, QD
     Route: 058
     Dates: start: 20230225
  5. TEDUGLUTIDE [Suspect]
     Active Substance: TEDUGLUTIDE
     Dosage: 16 MILLIGRAM, QD
     Route: 058
  6. TEDUGLUTIDE [Suspect]
     Active Substance: TEDUGLUTIDE
     Dosage: 16 MILLIGRAM, QD
     Route: 058
  7. TEDUGLUTIDE [Suspect]
     Active Substance: TEDUGLUTIDE
     Dosage: 16 MILLIGRAM, QD
     Route: 058
  8. TEDUGLUTIDE [Suspect]
     Active Substance: TEDUGLUTIDE
     Dosage: 16 MILLIGRAM, QD
     Route: 058
  9. TEDUGLUTIDE [Suspect]
     Active Substance: TEDUGLUTIDE
     Dosage: 1.6 MILLIGRAM, QD
     Route: 058
  10. TEDUGLUTIDE [Suspect]
     Active Substance: TEDUGLUTIDE
     Dosage: 1.6 MILLIGRAM, QD
     Route: 058
  11. TEDUGLUTIDE [Suspect]
     Active Substance: TEDUGLUTIDE
     Dosage: 1.6 MILLIGRAM, QD
     Route: 058
  12. TEDUGLUTIDE [Suspect]
     Active Substance: TEDUGLUTIDE
     Dosage: 1.6 MILLIGRAM, QD
     Route: 058

REACTIONS (41)
  - Phimosis [Not Recovered/Not Resolved]
  - Weight decreased [Not Recovered/Not Resolved]
  - Cachexia [Not Recovered/Not Resolved]
  - Hypotension [Unknown]
  - General physical health deterioration [Not Recovered/Not Resolved]
  - Discouragement [Not Recovered/Not Resolved]
  - Malaise [Recovered/Resolved]
  - Pain [Not Recovered/Not Resolved]
  - Pyrexia [Recovering/Resolving]
  - Vascular device infection [Recovering/Resolving]
  - Diarrhoea [Not Recovered/Not Resolved]
  - Haemorrhage [Unknown]
  - Underweight [Not Recovered/Not Resolved]
  - Pallor [Not Recovered/Not Resolved]
  - Mood altered [Not Recovered/Not Resolved]
  - Suicidal ideation [Not Recovered/Not Resolved]
  - Groin pain [Unknown]
  - Gait disturbance [Unknown]
  - Vomiting [Not Recovered/Not Resolved]
  - Muscle strength abnormal [Unknown]
  - Dehydration [Unknown]
  - Mucosal dryness [Unknown]
  - Asthenia [Unknown]
  - Gait inability [Unknown]
  - Product availability issue [Unknown]
  - Weight increased [Not Recovered/Not Resolved]
  - Decreased appetite [Unknown]
  - Cold sweat [Recovered/Resolved]
  - Dizziness [Recovered/Resolved]
  - Poor venous access [Not Recovered/Not Resolved]
  - Boredom [Not Recovered/Not Resolved]
  - Procedural pain [Not Recovered/Not Resolved]
  - Fatigue [Not Recovered/Not Resolved]
  - Vision blurred [Recovered/Resolved]
  - Cyanosis [Recovered/Resolved]
  - Peripheral coldness [Recovered/Resolved]
  - Pruritus [Not Recovered/Not Resolved]
  - Rash [Not Recovered/Not Resolved]
  - Inappropriate schedule of product administration [Unknown]
  - Incorrect dose administered [Not Recovered/Not Resolved]
  - Product prescribing issue [Not Recovered/Not Resolved]

NARRATIVE: CASE EVENT DATE: 20230306
